FAERS Safety Report 19665175 (Version 4)
Quarter: 2021Q3

REPORT INFORMATION
  Report Type: Report from Study
  Country: US (occurrence: US)
  Receive Date: 20210806
  Receipt Date: 20210928
  Transmission Date: 20211014
  Serious: No
  Sender: FDA-Public Use
  Company Number: NVSC2021US173468

PATIENT
  Age: 64 Year
  Sex: Female

DRUGS (1)
  1. COSENTYX [Suspect]
     Active Substance: SECUKINUMAB
     Indication: PSORIASIS
     Dosage: 300 MG, QMO(28 DAYS)
     Route: 058

REACTIONS (6)
  - Eye infection [Recovering/Resolving]
  - Blood glucose decreased [Unknown]
  - Arthropathy [Not Recovered/Not Resolved]
  - Insomnia [Recovering/Resolving]
  - Psoriasis [Recovering/Resolving]
  - Arthritis [Unknown]

NARRATIVE: CASE EVENT DATE: 20210727
